FAERS Safety Report 4364155-X (Version None)
Quarter: 2004Q2

REPORT INFORMATION
  Report Type: 
  Country: None (occurrence: None)
  Receive Date: 20040519
  Receipt Date: 20040510
  Transmission Date: 20050107
  Serious: Yes (Hospitalization)
  Sender: FDA-Public Use
  Company Number: USA-2004-0015008

PATIENT
  Age: 3 Year

DRUGS (1)
  1. OXYCONTIN [Suspect]
     Dosage: 10 MG, SINGLE, ORAL
     Route: 048

REACTIONS (2)
  - ACCIDENTAL EXPOSURE [None]
  - LETHARGY [None]
